FAERS Safety Report 9185482 (Version 2)
Quarter: 2013Q2

REPORT INFORMATION
  Report Type: Spontaneous
  Country: US (occurrence: US)
  Receive Date: 20130325
  Receipt Date: 20130513
  Transmission Date: 20140414
  Serious: No
  Sender: FDA-Public Use
  Company Number: US-BIOGENIDEC-2013BI025938

PATIENT
  Sex: Female

DRUGS (1)
  1. TYSABRI [Suspect]
     Indication: MULTIPLE SCLEROSIS
     Route: 042
     Dates: start: 20090717

REACTIONS (17)
  - Joint crepitation [Not Recovered/Not Resolved]
  - Trismus [Not Recovered/Not Resolved]
  - Lumbar spinal stenosis [Not Recovered/Not Resolved]
  - Rosacea [Not Recovered/Not Resolved]
  - Stress at work [Not Recovered/Not Resolved]
  - Feeling abnormal [Not Recovered/Not Resolved]
  - Vision blurred [Not Recovered/Not Resolved]
  - Blindness transient [Recovered/Resolved]
  - Incontinence [Recovered/Resolved]
  - Colour blindness acquired [Not Recovered/Not Resolved]
  - Altered visual depth perception [Not Recovered/Not Resolved]
  - Visual impairment [Recovered/Resolved]
  - Cervical spinal stenosis [Unknown]
  - Hypoaesthesia [Not Recovered/Not Resolved]
  - Suffocation feeling [Recovered/Resolved]
  - Multiple sclerosis relapse [Recovered/Resolved]
  - Dyspnoea [Recovered/Resolved]
